FAERS Safety Report 7922068-8 (Version None)
Quarter: 2011Q4

REPORT INFORMATION
  Report Type: 
  Country: None (occurrence: None)
  Receive Date: 20111117
  Receipt Date: 20110331
  Transmission Date: 20120403
  Serious: Yes (Other)
  Sender: FDA-Public Use
  Company Number: US-AMGEN-USASP2011018725

PATIENT

DRUGS (3)
  1. METHOTREXATE [Concomitant]
     Dosage: UNK UNK, UNK
  2. ENBREL [Suspect]
     Indication: RHEUMATOID ARTHRITIS
  3. ENBREL [Suspect]
     Indication: PSORIASIS
     Dosage: 50 MG, WEEKLY

REACTIONS (1)
  - PSORIASIS [None]
